FAERS Safety Report 9375323 (Version 1)
Quarter: 2013Q2

REPORT INFORMATION
  Report Type: Spontaneous
  Country: FR (occurrence: FR)
  Receive Date: 20130628
  Receipt Date: 20130628
  Transmission Date: 20140414
  Serious: Yes (Death)
  Sender: FDA-Public Use
  Company Number: FR-009507513-1306FRA009516

PATIENT
  Age: 76 Year
  Sex: Female

DRUGS (8)
  1. JANUMET [Suspect]
     Indication: TYPE 2 DIABETES MELLITUS
     Dosage: UNK
     Route: 048
     Dates: end: 20121211
  2. AXELER [Concomitant]
  3. HYDROCHLOROTHIAZIDE (+) NEBIVOLOL HYDROCHLORIDE [Concomitant]
  4. RILMENIDINE [Concomitant]
  5. PRAXILENE [Concomitant]
  6. IDEOS [Concomitant]
  7. ACTONEL [Concomitant]
  8. PRAVADUAL [Concomitant]

REACTIONS (1)
  - Lactic acidosis [Fatal]
